FAERS Safety Report 5402298-X (Version None)
Quarter: 2007Q3

REPORT INFORMATION
  Report Type: 
  Country: None (occurrence: None)
  Receive Date: 20070730
  Receipt Date: 20070730
  Transmission Date: 20080115
  Serious: Yes (Death, Life-Threatening)
  Sender: FDA-Public Use
  Company Number: None

PATIENT
  Age: 81 Year
  Sex: Female
  Weight: 63.9572 kg

DRUGS (9)
  1. VANCOMYCIN [Suspect]
     Indication: STAPHYLOCOCCAL INFECTION
     Dosage: VARIED DOSES 1GM Q18H TO TOTAL DAILY DOSE OF 1750MG
     Dates: start: 20070620, end: 20070624
  2. VANCOMYCIN [Suspect]
     Indication: UROSEPSIS
     Dosage: VARIED DOSES 1GM Q18H TO TOTAL DAILY DOSE OF 1750MG
     Dates: start: 20070620, end: 20070624
  3. HEPARIN [Concomitant]
  4. DIGOXIN [Concomitant]
  5. LEVOFLOXACIN [Concomitant]
  6. CLONIDINE [Concomitant]
  7. PROTONIX [Concomitant]
  8. ATENOLOL [Concomitant]
  9. PAXIL [Concomitant]

REACTIONS (2)
  - STEVENS-JOHNSON SYNDROME [None]
  - TOXIC EPIDERMAL NECROLYSIS [None]
